FAERS Safety Report 9411601 (Version 2)
Quarter: 2013Q3

REPORT INFORMATION
  Report Type: Spontaneous
  Country: US (occurrence: US)
  Receive Date: 20130722
  Receipt Date: 20130822
  Transmission Date: 20140515
  Serious: Yes (Other)
  Sender: FDA-Public Use
  Company Number: US-BAYER-2013-086282

PATIENT
  Age: 35 Year
  Sex: Female

DRUGS (2)
  1. MIRENA [Suspect]
     Indication: MENORRHAGIA
     Dosage: 20 ?G, CONT
     Route: 015
     Dates: start: 20130227
  2. MIRENA [Suspect]
     Indication: CONTRACEPTION

REACTIONS (11)
  - Vaginal haemorrhage [None]
  - Menorrhagia [None]
  - Polymenorrhoea [None]
  - Vaginal haemorrhage [None]
  - Menorrhagia [None]
  - Abdominal pain lower [None]
  - Vaginal discharge [None]
  - Hypomenorrhoea [None]
  - Abdominal distension [None]
  - Feeling abnormal [None]
  - Menstrual disorder [None]
